FAERS Safety Report 9909035 (Version 1)
Quarter: 2014Q1

REPORT INFORMATION
  Report Type: Spontaneous
  Country: US (occurrence: None)
  Receive Date: 20140212
  Receipt Date: 20140212
  Transmission Date: 20141002
  Serious: No
  Sender: FDA-Public Use
  Company Number: 2014US003009

PATIENT
  Age: 46 Year
  Sex: Female
  Weight: 72 kg

DRUGS (2)
  1. PONATINIB (AP24534) TABLET [Suspect]
     Indication: CHRONIC MYELOID LEUKAEMIA
     Route: 048
     Dates: start: 20131228
  2. FOLFOX-4 (FLUOROURACIL, FOLINIC ACID, OXALIPLATIN) [Suspect]
     Dosage: Q2WKS (ONE TIME)
     Dates: start: 20140115, end: 20140115

REACTIONS (2)
  - Dehydration [None]
  - Nausea [None]
